FAERS Safety Report 25001693 (Version 1)
Quarter: 2025Q1

REPORT INFORMATION
  Report Type: Spontaneous
  Country: US (occurrence: US)
  Receive Date: 20250223
  Receipt Date: 20250223
  Transmission Date: 20250409
  Serious: No
  Sender: ENDO
  Company Number: US-ENDO USA, INC.-2024-002026

PATIENT

DRUGS (1)
  1. DANTRIUM [Suspect]
     Active Substance: DANTROLENE SODIUM
     Indication: Product used for unknown indication
     Route: 065

REACTIONS (5)
  - Muscle tightness [Unknown]
  - Muscle spasms [Unknown]
  - Stress [Unknown]
  - Convulsive threshold lowered [Unknown]
  - Product substitution issue [Unknown]
